FAERS Safety Report 22118913 (Version 1)
Quarter: 2023Q1

REPORT INFORMATION
  Report Type: Spontaneous
  Country: US (occurrence: US)
  Receive Date: 20230321
  Receipt Date: 20230321
  Transmission Date: 20230418
  Serious: Yes (Other)
  Sender: FDA-Public Use
  Company Number: US-JNJFOC-20230325883

PATIENT

DRUGS (3)
  1. TECLISTAMAB [Suspect]
     Active Substance: TECLISTAMAB
     Indication: Product used for unknown indication
     Route: 065
     Dates: start: 20230228
  2. TECLISTAMAB [Suspect]
     Active Substance: TECLISTAMAB
     Route: 065
     Dates: start: 20230303
  3. TECLISTAMAB [Suspect]
     Active Substance: TECLISTAMAB
     Dosage: DELAYED A DAY
     Route: 065
     Dates: start: 20230307

REACTIONS (3)
  - Myocardial infarction [Unknown]
  - Immune effector cell-associated neurotoxicity syndrome [Unknown]
  - Transaminases increased [Recovering/Resolving]

NARRATIVE: CASE EVENT DATE: 20230304
